FAERS Safety Report 5302246-7 (Version None)
Quarter: 2007Q2

REPORT INFORMATION
  Report Type: 
  Country: None (occurrence: None)
  Receive Date: 20070419
  Receipt Date: 20060411
  Transmission Date: 20071010
  Serious: No
  Sender: FDA-Public Use
  Company Number: US-GLAXOSMITHKLINE-A0596486A

PATIENT
  Age: 61 Year
  Sex: Female

DRUGS (5)
  1. LITHIUM CARBONATE [Suspect]
     Dosage: 1TAB TWICE PER DAY
     Route: 048
     Dates: start: 20050101, end: 20050101
  2. ESKALITH CR [Suspect]
     Indication: BIPOLAR DISORDER
     Route: 048
     Dates: start: 19820101
  3. SYNTHROID [Concomitant]
  4. PREMARIN [Concomitant]
  5. XANAX [Concomitant]

REACTIONS (5)
  - ASTHENIA [None]
  - BLADDER DISORDER [None]
  - PAIN [None]
  - POLLAKIURIA [None]
  - RENAL DISORDER [None]
